FAERS Safety Report 5997050-0 (Version None)
Quarter: 2008Q4

REPORT INFORMATION
  Report Type: 
  Country: None (occurrence: None)
  Receive Date: 20081212
  Receipt Date: 20081103
  Transmission Date: 20090506
  Serious: No
  Sender: FDA-Public Use
  Company Number: US-ABBOTT-08P-163-0485241-00

PATIENT
  Sex: Female
  Weight: 59.02 kg

DRUGS (4)
  1. HUMIRA [Suspect]
     Indication: ANKYLOSING SPONDYLITIS
     Route: 058
     Dates: start: 20080201
  2. ESOMEPRAZOLE MAGNESIUM [Concomitant]
     Indication: GASTROOESOPHAGEAL REFLUX DISEASE
     Route: 048
  3. METHOTREXATE [Concomitant]
     Indication: ARTHRITIS
     Dosage: UNSURE OF DOSE
     Route: 048
  4. RALOXIFENE HCL [Concomitant]
     Indication: HORMONE REPLACEMENT THERAPY
     Dosage: UNSURE OF STRENGTH
     Route: 048

REACTIONS (2)
  - ARTHRALGIA [None]
  - FATIGUE [None]
